FAERS Safety Report 5392098-1 (Version None)
Quarter: 2007Q3

REPORT INFORMATION
  Report Type: 
  Country: None (occurrence: None)
  Receive Date: 20070720
  Receipt Date: 20070717
  Transmission Date: 20080115
  Serious: Yes (Other)
  Sender: FDA-Public Use
  Company Number: FRWYE039717JUL07

PATIENT
  Age: 51 Year
  Sex: Male

DRUGS (1)
  1. EFFEXOR [Suspect]
     Dosage: DOSAGE FORM 50 MG; FREQUENCY UNSPECIFIED
     Route: 048

REACTIONS (2)
  - GASTROINTESTINAL NECROSIS [None]
  - ILEUS [None]
